FAERS Safety Report 8976315 (Version 1)
Quarter: 2012Q4

REPORT INFORMATION
  Report Type: 
  Country: CN (occurrence: CN)
  Receive Date: 20121220
  Receipt Date: 20121220
  Transmission Date: 20130627
  Serious: Yes (Other)
  Sender: FDA-Public Use
  Company Number: CN-009507513-1212CHN007443

PATIENT
  Age: 5 Year
  Sex: Male
  Weight: 19 kg

DRUGS (1)
  1. CLARITYNE [Suspect]
     Indication: RASH
     Dosage: 1/3 tablet, qd
     Route: 048
     Dates: start: 20100111, end: 20100112

REACTIONS (7)
  - Urticaria [Recovered/Resolved]
  - Pruritus [Recovered/Resolved]
  - Wrong technique in drug usage process [Unknown]
  - Urticaria [Recovered/Resolved]
  - Pruritus [Recovered/Resolved]
  - Eyelid oedema [Recovered/Resolved]
  - Eyelid oedema [Recovered/Resolved]
